FAERS Safety Report 4265599-7 (Version None)
Quarter: 2004Q1

REPORT INFORMATION
  Report Type: 
  Country: None (occurrence: None)
  Receive Date: 20040107
  Receipt Date: 20040107
  Transmission Date: 20041129
  Serious: Yes (Life-Threatening, Hospitalization)
  Sender: FDA-Public Use
  Company Number: None

PATIENT
  Sex: Female
  Weight: 77.1115 kg

DRUGS (2)
  1. CYTOTEC [Suspect]
     Indication: CAESAREAN SECTION
     Dosage: 2 TIMES INTRA-UTERINE
     Route: 015
     Dates: start: 19990128, end: 19990128
  2. CYTOTEC [Suspect]
     Indication: FAILED TRIAL OF LABOUR
     Dosage: 2 TIMES INTRA-UTERINE
     Route: 015
     Dates: start: 19990128, end: 19990128

REACTIONS (1)
  - UTERINE RUPTURE [None]
